FAERS Safety Report 9610575 (Version 2)
Quarter: 2013Q4

REPORT INFORMATION
  Report Type: Spontaneous
  Country: FR (occurrence: FR)
  Receive Date: 20131009
  Receipt Date: 20131009
  Transmission Date: 20140711
  Serious: Yes (Hospitalization, Other)
  Sender: FDA-Public Use
  Company Number: FR-SA-E2013-06830

PATIENT
  Age: 36 Year
  Sex: Female

DRUGS (1)
  1. TUBERCULIN PPD(M) 5 TU [Suspect]
     Indication: TUBERCULIN TEST
     Route: 065
     Dates: start: 20130909, end: 20130909

REACTIONS (5)
  - Anaphylactic reaction [Recovered/Resolved]
  - Dyspnoea [Recovered/Resolved]
  - Pruritus generalised [Recovered/Resolved]
  - Rash generalised [Recovered/Resolved]
  - Vaccination site rash [Recovered/Resolved]
